FAERS Safety Report 10202412 (Version 1)
Quarter: 2014Q2

REPORT INFORMATION
  Report Type: Report from Study
  Country: US (occurrence: US)
  Receive Date: 20140528
  Receipt Date: 20140528
  Transmission Date: 20141212
  Serious: Yes (Other)
  Sender: FDA-Public Use
  Company Number: US-ROCHE-1404948

PATIENT
  Sex: 0

DRUGS (5)
  1. TRASTUZUMAB [Suspect]
     Indication: HER-2 POSITIVE BREAST CANCER
     Dosage: LOADING
     Route: 065
  2. TRASTUZUMAB [Suspect]
     Route: 065
  3. TRASTUZUMAB [Suspect]
     Route: 065
  4. PACLITAXEL [Suspect]
     Indication: HER-2 POSITIVE BREAST CANCER
     Route: 065
  5. LAPATINIB [Suspect]
     Indication: HER-2 POSITIVE BREAST CANCER
     Route: 065

REACTIONS (7)
  - Lymphopenia [Unknown]
  - Anaemia [Unknown]
  - Cellulitis [Unknown]
  - Transaminases abnormal [Unknown]
  - Dehydration [Unknown]
  - Diarrhoea [Unknown]
  - Rash [Unknown]
